FAERS Safety Report 5762403-2 (Version None)
Quarter: 2008Q2

REPORT INFORMATION
  Report Type: 
  Country: None (occurrence: None)
  Receive Date: 20080609
  Receipt Date: 20080529
  Transmission Date: 20081010
  Serious: Yes (Hospitalization)
  Sender: FDA-Public Use
  Company Number: US-AMGEN-QUU277832

PATIENT
  Sex: Female

DRUGS (8)
  1. ENBREL [Suspect]
     Indication: PSORIASIS
     Route: 058
     Dates: start: 20051215, end: 20080101
  2. INSULIN [Concomitant]
     Dates: start: 19980601
  3. METHOTREXATE [Concomitant]
     Route: 030
  4. KENALOG [Concomitant]
     Route: 030
  5. CEPHALEXIN [Concomitant]
  6. ATARAX [Concomitant]
  7. PREDNISONE TAB [Concomitant]
     Dates: start: 20051215, end: 20060106
  8. LEVAQUIN [Concomitant]
     Dates: start: 20051215

REACTIONS (6)
  - BRONCHITIS [None]
  - LIPIDS ABNORMAL [None]
  - OEDEMA PERIPHERAL [None]
  - PAIN IN EXTREMITY [None]
  - PSORIASIS [None]
  - RENAL FAILURE [None]
